FAERS Safety Report 4897008-9 (Version None)
Quarter: 2006Q1

REPORT INFORMATION
  Report Type: 
  Country: None (occurrence: None)
  Receive Date: 20060127
  Receipt Date: 20060112
  Transmission Date: 20060701
  Serious: No
  Sender: FDA-Public Use
  Company Number: GB200601001731

PATIENT
  Age: 57 Year
  Sex: Female

DRUGS (3)
  1. ZYPREXA [Suspect]
     Dosage: 5 MG
  2. SERTRALINE [Concomitant]
  3. CARBIMAZOLE (CARBIMAZOLE) [Concomitant]

REACTIONS (2)
  - LYMPHOPENIA [None]
  - NEUTROPENIA [None]
